FAERS Safety Report 23712200 (Version 1)
Quarter: 2024Q2

REPORT INFORMATION
  Report Type: Spontaneous
  Country: US (occurrence: None)
  Receive Date: 20240404
  Receipt Date: 20240404
  Transmission Date: 20240715
  Serious: Yes (Other)
  Sender: FDA-Public Use
  Company Number: None

PATIENT
  Age: 56 Year
  Sex: Female
  Weight: 64.35 kg

DRUGS (2)
  1. OZEMPIC [Suspect]
     Active Substance: SEMAGLUTIDE
     Indication: Type 2 diabetes mellitus
     Route: 058
     Dates: start: 20240215, end: 20240321
  2. Oxubutynin 5 mg po Q HS [Concomitant]

REACTIONS (4)
  - Abdominal pain upper [None]
  - Dyspnoea [None]
  - Lipase increased [None]
  - Obstructive pancreatitis [None]

NARRATIVE: CASE EVENT DATE: 20240326
